FAERS Safety Report 6434121-9 (Version None)
Quarter: 2009Q4

REPORT INFORMATION
  Report Type: 
  Country: None (occurrence: None)
  Receive Date: 20091110
  Receipt Date: 20090113
  Transmission Date: 20100525
  Serious: No
  Sender: FDA-Public Use
  Company Number: US-ASTRAZENECA-2009UW18354

PATIENT
  Age: 68 Year
  Sex: Female

DRUGS (8)
  1. PRILOSEC OTC [Suspect]
     Indication: ULCER
     Dosage: 6 TABLET, UNK FREQ
     Route: 048
  2. PRILOSEC OTC [Suspect]
     Indication: ABDOMINAL PAIN UPPER
     Dosage: 6 TABLET, UNK FREQ
     Route: 048
  3. CLONAZEPAM [Concomitant]
     Dosage: UNKNOWN
  4. PHENOBARBITAL [Concomitant]
     Dosage: UNKNOWN
  5. DILANTIN [Concomitant]
     Dosage: UNKNOWN
  6. LEVOXYL [Concomitant]
     Dosage: UNKNOWN
  7. FORTICAL [Concomitant]
     Dosage: UNKNOWN
  8. PROZAC [Concomitant]
     Dosage: UNKNOWN

REACTIONS (5)
  - ASTHENIA [None]
  - CONDITION AGGRAVATED [None]
  - CONFUSIONAL STATE [None]
  - INAPPROPRIATE SCHEDULE OF DRUG ADMINISTRATION [None]
  - SOMNOLENCE [None]
